FAERS Safety Report 4714870-0 (Version None)
Quarter: 2005Q3

REPORT INFORMATION
  Report Type: 
  Country: None (occurrence: None)
  Receive Date: 20050713
  Receipt Date: 20050712
  Transmission Date: 20060218
  Serious: Yes (Death)
  Sender: FDA-Public Use
  Company Number: TUK2005A00048

PATIENT
  Age: 73 Year
  Sex: Female

DRUGS (7)
  1. ACTOS [Suspect]
     Indication: DIABETES MELLITUS
     Dosage: 30 MG ORAL
     Route: 048
     Dates: start: 20041008, end: 20050529
  2. TENORETIC(TENORETIC) [Concomitant]
  3. ADALAT [Concomitant]
  4. METFORMIN HCL [Concomitant]
  5. GLICLAZIDE (GLICLAZIDE) [Concomitant]
  6. ATORVASTATIN CALCIUM [Concomitant]
  7. CO-DYDRAMOL (PARAMOL-118) [Concomitant]

REACTIONS (1)
  - CEREBROVASCULAR ACCIDENT [None]
